FAERS Safety Report 19495776 (Version 1)
Quarter: 2021Q3

REPORT INFORMATION
  Report Type: Spontaneous
  Country: US (occurrence: US)
  Receive Date: 20210702
  Receipt Date: 20210702
  Transmission Date: 20211014
  Serious: Yes (Disabling, Other)
  Sender: FDA-Public Use
  Company Number: None

PATIENT
  Age: 42 Year
  Sex: Female
  Weight: 73.35 kg

DRUGS (3)
  1. DAILY MULTIVITAMIN [Concomitant]
     Active Substance: VITAMINS
  2. MAGNESIUM [Concomitant]
     Active Substance: MAGNESIUM
  3. GABAPENTIN. [Suspect]
     Active Substance: GABAPENTIN
     Indication: PAIN
     Route: 048
     Dates: start: 20201220, end: 20210617

REACTIONS (17)
  - Insomnia [None]
  - Fatigue [None]
  - Palpitations [None]
  - Depression [None]
  - Restlessness [None]
  - Hypoaesthesia [None]
  - Apathy [None]
  - Hyperhidrosis [None]
  - Suicidal ideation [None]
  - Flat affect [None]
  - Panic attack [None]
  - Anxiety [None]
  - Fear [None]
  - Mental disorder [None]
  - Electric shock sensation [None]
  - Chills [None]
  - Body temperature increased [None]

NARRATIVE: CASE EVENT DATE: 20210316
